FAERS Safety Report 18252354 (Version 1)
Quarter: 2020Q3

REPORT INFORMATION
  Report Type: Spontaneous
  Country: US (occurrence: US)
  Receive Date: 20200910
  Receipt Date: 20200910
  Transmission Date: 20201103
  Serious: No
  Sender: FDA-Public Use
  Company Number: US-FARMAPROD-202006-0858

PATIENT
  Sex: Female

DRUGS (5)
  1. OXERVATE [Suspect]
     Active Substance: CENEGERMIN-BKBJ
     Indication: NEUROTROPHIC KERATOPATHY
     Route: 047
     Dates: start: 20200612
  2. REFRESH LACRI?LUBE [Concomitant]
     Active Substance: MINERAL OIL\PETROLATUM
  3. VITAMIN D?400 [Concomitant]
  4. RETAINE MGD [Concomitant]
     Active Substance: LIGHT MINERAL OIL\MINERAL OIL
     Dosage: 0.5%?0.5% DROPERETTE
  5. MAXALT [Concomitant]
     Active Substance: RIZATRIPTAN BENZOATE

REACTIONS (5)
  - Eye irritation [Unknown]
  - Eye pain [Unknown]
  - Contusion [Unknown]
  - Eye swelling [Unknown]
  - Eye contusion [Unknown]
